FAERS Safety Report 13950493 (Version 1)
Quarter: 2017Q3

REPORT INFORMATION
  Report Type: Spontaneous
  Country: US (occurrence: US)
  Receive Date: 20170908
  Receipt Date: 20170908
  Transmission Date: 20171128
  Serious: Yes (Life-Threatening, Disabling, Other)
  Sender: FDA-Public Use
  Company Number: US-TEVA-804582USA

PATIENT
  Sex: Female

DRUGS (1)
  1. AMIODARONE [Suspect]
     Active Substance: AMIODARONE
     Indication: ATRIAL FIBRILLATION
     Route: 065
     Dates: start: 200310

REACTIONS (19)
  - Loss of personal independence in daily activities [Unknown]
  - Weight fluctuation [Unknown]
  - Pulmonary hypertension [Unknown]
  - Bilevel positive airway pressure [Unknown]
  - Insomnia [Unknown]
  - Adverse event [Unknown]
  - Cough [Unknown]
  - Anxiety [Unknown]
  - Dyspnoea [Unknown]
  - Off label use [Unknown]
  - Restrictive pulmonary disease [Unknown]
  - Wheezing [Unknown]
  - Asthenia [Unknown]
  - Continuous positive airway pressure [Unknown]
  - Oxygen therapy [Unknown]
  - Dyspnoea exertional [Unknown]
  - Toxicity to various agents [Unknown]
  - Lung disorder [Unknown]
  - Nephropathy [Unknown]

NARRATIVE: CASE EVENT DATE: 201504
